FAERS Safety Report 23711473 (Version 1)
Quarter: 2024Q2

REPORT INFORMATION
  Report Type: Report from Study
  Country: US (occurrence: US)
  Receive Date: 20240405
  Receipt Date: 20240405
  Transmission Date: 20240716
  Serious: Yes (Other)
  Sender: FDA-Public Use
  Company Number: US-JNJFOC-20240406686

PATIENT

DRUGS (6)
  1. SIMPONI [Suspect]
     Active Substance: GOLIMUMAB
     Indication: Asthma
     Dosage: 75 MG DOSE AT BASELINE
     Route: 058
  2. SIMPONI [Suspect]
     Active Substance: GOLIMUMAB
     Dosage: 150 MG AT BASELINE
     Route: 058
  3. SIMPONI [Suspect]
     Active Substance: GOLIMUMAB
     Dosage: 300 MG AT BASELINE
     Route: 058
  4. FLUTICASONE PROPIONATE [Concomitant]
     Active Substance: FLUTICASONE PROPIONATE
     Dosage: 500 MG
  5. SALMETEROL [Concomitant]
     Active Substance: SALMETEROL
     Dosage: 50 MG
  6. THEOPHYLLINE [Concomitant]
     Active Substance: THEOPHYLLINE

REACTIONS (15)
  - Malignant melanoma [Unknown]
  - B-cell lymphoma [Unknown]
  - Pneumonia [Unknown]
  - Sepsis [Unknown]
  - Basal cell carcinoma [Unknown]
  - Breast cancer [Unknown]
  - Cervix carcinoma [Unknown]
  - Colon cancer [Unknown]
  - Renal cell carcinoma [Unknown]
  - Nausea [Unknown]
  - Chest pain [Unknown]
  - Sinusitis [Unknown]
  - Injection site erythema [Unknown]
  - Cellulitis [Unknown]
  - Off label use [Unknown]
